FAERS Safety Report 8093335-5 (Version None)
Quarter: 2012Q1

REPORT INFORMATION
  Report Type: 
  Country: None (occurrence: None)
  Receive Date: 20120128
  Receipt Date: 20110901
  Transmission Date: 20120608
  Serious: No
  Sender: FDA-Public Use
  Company Number: US-ABBOTT-11P-163-0850957-00

PATIENT
  Sex: Female

DRUGS (1)
  1. HUMIRA [Suspect]
     Indication: CROHN'S DISEASE
     Route: 058
     Dates: start: 20110225

REACTIONS (7)
  - INJECTION SITE REACTION [None]
  - INJECTION SITE RASH [None]
  - INJECTION SITE ERYTHEMA [None]
  - INJECTION SITE NODULE [None]
  - NASAL CONGESTION [None]
  - HYPERSENSITIVITY [None]
  - INJECTION SITE PRURITUS [None]
